FAERS Safety Report 8145195-1 (Version None)
Quarter: 2012Q1

REPORT INFORMATION
  Report Type: 
  Country: None (occurrence: None)
  Receive Date: 20120217
  Receipt Date: 20120215
  Transmission Date: 20120608
  Serious: Yes (Death, Hospitalization)
  Sender: FDA-Public Use
  Company Number: PHHY2012BD011436

PATIENT
  Age: 23 Year
  Sex: Female

DRUGS (2)
  1. FOLIC ACID [Concomitant]
  2. SEBIVO [Suspect]
     Indication: HEPATITIS B
     Route: 048
     Dates: start: 20110101

REACTIONS (7)
  - MATERNAL EXPOSURE DURING PREGNANCY [None]
  - DYSPNOEA [None]
  - PREMATURE RUPTURE OF MEMBRANES [None]
  - HAEMORRHAGE IN PREGNANCY [None]
  - PREMATURE DELIVERY [None]
  - SHOCK [None]
  - CARDIOPULMONARY FAILURE [None]
